FAERS Safety Report 8369199-9 (Version None)
Quarter: 2012Q2

REPORT INFORMATION
  Report Type: 
  Country: None (occurrence: None)
  Receive Date: 20120518
  Receipt Date: 20120511
  Transmission Date: 20120825
  Serious: Yes (Other)
  Sender: FDA-Public Use
  Company Number: US-BAYER-2012-048227

PATIENT
  Age: 35 Year
  Sex: Female
  Weight: 102 kg

DRUGS (6)
  1. MULTI-VITAMINS [Concomitant]
  2. PRILOSEC [Concomitant]
     Dosage: 10 MG, UNK
     Route: 048
  3. YASMIN [Suspect]
  4. MOTRIN [Concomitant]
  5. ERYTHROMYCIN [Concomitant]
     Indication: ROSACEA
     Dosage: 250 MG, UNK
     Route: 048
  6. ERYTHROMYCIN [Concomitant]
     Indication: ACNE

REACTIONS (1)
  - DEEP VEIN THROMBOSIS [None]
